FAERS Safety Report 5160193-8 (Version None)
Quarter: 2006Q4

REPORT INFORMATION
  Report Type: 
  Country: None (occurrence: None)
  Receive Date: 20061120
  Receipt Date: 20061101
  Transmission Date: 20070319
  Serious: Yes (Other)
  Sender: FDA-Public Use
  Company Number: DSA_28938_2006

PATIENT
  Sex: Female

DRUGS (1)
  1. ATIVAN [Suspect]
     Indication: ANXIETY
     Dosage: 2 MG Q DAY PO
     Route: 048
     Dates: end: 20061001

REACTIONS (4)
  - ANOREXIA [None]
  - FEELING ABNORMAL [None]
  - INSOMNIA [None]
  - WEIGHT DECREASED [None]
